FAERS Safety Report 6237138-2 (Version None)
Quarter: 2009Q2

REPORT INFORMATION
  Report Type: 
  Country: None (occurrence: None)
  Receive Date: 20090619
  Receipt Date: 20090423
  Transmission Date: 20091009
  Serious: No
  Sender: FDA-Public Use
  Company Number: US-ASTRAZENECA-2009UW10218

PATIENT
  Age: 22 Year
  Sex: Male
  Weight: 63.5 kg

DRUGS (3)
  1. SYMBICORT [Suspect]
     Indication: ASTHMA
     Dosage: 320 UG
     Route: 055
     Dates: start: 20090201
  2. XOPENEX [Concomitant]
  3. CLARITIN [Concomitant]
     Indication: MULTIPLE ALLERGIES

REACTIONS (2)
  - ASTHMA [None]
  - DRUG DOSE OMISSION [None]
